FAERS Safety Report 10554829 (Version 2)
Quarter: 2014Q4

REPORT INFORMATION
  Report Type: Spontaneous
  Country: US (occurrence: US)
  Receive Date: 20141030
  Receipt Date: 20141105
  Transmission Date: 20150529
  Serious: Yes (Hospitalization, Other)
  Sender: FDA-Public Use
  Company Number: US-TAKEDA-2014TUS010305

PATIENT
  Sex: Male
  Weight: 112 kg

DRUGS (8)
  1. PREDNISONE. [Concomitant]
     Active Substance: PREDNISONE
     Indication: CROHN^S DISEASE
     Dosage: 30 MG, UNK, FROM SIX MONTHS
  2. ENTYVIO [Suspect]
     Active Substance: VEDOLIZUMAB
     Indication: CROHN^S DISEASE
     Dosage: 300 MG, FIRST DOSE
     Route: 042
     Dates: start: 2014, end: 2014
  3. LIALDA [Concomitant]
     Active Substance: MESALAMINE
     Indication: CROHN^S DISEASE
     Dosage: UNK, BID, FROM SIX MONTHS
  4. ROWASA [Concomitant]
     Active Substance: MESALAMINE
     Indication: CROHN^S DISEASE
     Dosage: UNK, QD, FROM SIX MONTHS
  5. NORCO [Concomitant]
     Active Substance: ACETAMINOPHEN\HYDROCODONE BITARTRATE
     Indication: CROHN^S DISEASE
     Dosage: FREQUENT, FROM SIX MONTHS
  6. ENTYVIO [Suspect]
     Active Substance: VEDOLIZUMAB
     Dosage: 300 MG, SECOND DOSE
     Route: 042
     Dates: start: 2014, end: 2014
  7. ENTYVIO [Suspect]
     Active Substance: VEDOLIZUMAB
     Dosage: 300 MG, THIRD DOSE
     Route: 042
     Dates: start: 2014, end: 2014
  8. XANAX [Concomitant]
     Active Substance: ALPRAZOLAM
     Indication: CROHN^S DISEASE
     Dosage: OCCASIONAL, FROM SIX MONTHS

REACTIONS (2)
  - Generalised tonic-clonic seizure [Recovering/Resolving]
  - Generalised tonic-clonic seizure [Recovering/Resolving]

NARRATIVE: CASE EVENT DATE: 2014
